FAERS Safety Report 25446041 (Version 1)
Quarter: 2025Q2

REPORT INFORMATION
  Report Type: Spontaneous
  Country: PL (occurrence: PL)
  Receive Date: 20250617
  Receipt Date: 20250617
  Transmission Date: 20250716
  Serious: Yes (Hospitalization, Other)
  Sender: BAYER HEALTHCARE PHARMACEUTICALS INC.
  Company Number: PL-BAYER-2025A077204

PATIENT
  Age: 69 Year
  Sex: Male

DRUGS (5)
  1. NUBEQA [Suspect]
     Active Substance: DAROLUTAMIDE
     Dates: start: 20240807
  2. DOCETAXEL [Concomitant]
     Active Substance: DOCETAXEL
     Dates: end: 202501
  3. URSODIOL [Concomitant]
     Active Substance: URSODIOL
  4. ORNITHINE ASPARTATE [Concomitant]
     Active Substance: ORNITHINE ASPARTATE
  5. Hepatoprotect [Concomitant]

REACTIONS (8)
  - Metastases to bone [Not Recovered/Not Resolved]
  - Eosinophil count increased [None]
  - Blood calcium increased [None]
  - Blood bilirubin increased [None]
  - Aspartate aminotransferase increased [None]
  - Alanine aminotransferase increased [None]
  - Blood alkaline phosphatase increased [None]
  - Hepatic function abnormal [None]

NARRATIVE: CASE EVENT DATE: 20240101
